FAERS Safety Report 18500288 (Version 1)
Quarter: 2020Q4

REPORT INFORMATION
  Report Type: Report from Study
  Country: FR (occurrence: FR)
  Receive Date: 20201113
  Receipt Date: 20201113
  Transmission Date: 20210114
  Serious: Yes (Other)
  Sender: FDA-Public Use
  Company Number: FR-ACCORD-208212

PATIENT

DRUGS (1)
  1. BENDAMUSTINE [Suspect]
     Active Substance: BENDAMUSTINE
     Indication: LYMPHOPLASMACYTOID LYMPHOMA/IMMUNOCYTOMA
     Dosage: CYCLIC
     Route: 042

REACTIONS (1)
  - Lymphoplasmacytoid lymphoma/immunocytoma refractory [Unknown]
